FAERS Safety Report 4508821-1 (Version None)
Quarter: 2004Q4

REPORT INFORMATION
  Report Type: 
  Country: None (occurrence: None)
  Receive Date: 20041123
  Receipt Date: 20040827
  Transmission Date: 20050328
  Serious: No
  Sender: FDA-Public Use
  Company Number: US-GLAXOSMITHKLINE-A0523821A

PATIENT
  Age: 53 Year
  Sex: Female

DRUGS (5)
  1. WELLBUTRIN SR [Suspect]
     Indication: DEPRESSION
     Dosage: 150MG TWICE PER DAY
     Route: 048
  2. ALLEGRA [Concomitant]
  3. STOOL SOFTENER [Concomitant]
  4. ACIPHEX [Concomitant]
  5. ESTRADERM [Concomitant]

REACTIONS (3)
  - NAUSEA [None]
  - PHARMACEUTICAL PRODUCT COMPLAINT [None]
  - PRURITUS [None]
